FAERS Safety Report 8812151 (Version 1)
Quarter: 2012Q4

REPORT INFORMATION
  Report Type: 
  Country: US (occurrence: US)
  Receive Date: 20120927
  Receipt Date: 20120927
  Transmission Date: 20130627
  Serious: Yes (Hospitalization, Other)
  Sender: FDA-Public Use
  Company Number: US-ROCHE-1127794

PATIENT
  Age: 59 Year
  Sex: Male

DRUGS (3)
  1. AVASTIN [Suspect]
     Indication: PROSTATE CANCER
     Route: 065
     Dates: start: 200808, end: 20081002
  2. AVASTIN [Suspect]
     Route: 065
     Dates: start: 20081020
  3. CYCLOPHOSPHAMIDE [Concomitant]
     Route: 065
     Dates: start: 200810

REACTIONS (8)
  - Disease progression [Unknown]
  - Pain [Unknown]
  - Pneumonia [Unknown]
  - Anaemia [Unknown]
  - Pyrexia [Unknown]
  - Back pain [Unknown]
  - Metastasis [Unknown]
  - Pancytopenia [Unknown]
